FAERS Safety Report 5679609-3 (Version None)
Quarter: 2008Q1

REPORT INFORMATION
  Report Type: 
  Country: None (occurrence: None)
  Receive Date: 20080324
  Receipt Date: 20080311
  Transmission Date: 20080703
  Serious: Yes (Other)
  Sender: FDA-Public Use
  Company Number: 340008J08USA

PATIENT
  Sex: Female

DRUGS (2)
  1. OVIDREL [Suspect]
     Indication: INFERTILITY FEMALE
     Dates: start: 20080302
  2. FOLLISTIM [Suspect]

REACTIONS (1)
  - OVARIAN CYST RUPTURED [None]
